FAERS Safety Report 5525210-1 (Version None)
Quarter: 2007Q4

REPORT INFORMATION
  Report Type: 
  Country: None (occurrence: None)
  Receive Date: 20071126
  Receipt Date: 20071119
  Transmission Date: 20080405
  Serious: Yes (Other)
  Sender: FDA-Public Use
  Company Number: US-BRISTOL-MYERS SQUIBB COMPANY-13987615

PATIENT
  Age: 65 Year
  Sex: Female

DRUGS (8)
  1. CYCLOPHOSPHAMIDE [Suspect]
  2. ETOPOSIDE [Suspect]
     Indication: ACUTE MYELOID LEUKAEMIA
  3. METHOTREXATE [Suspect]
     Indication: GRAFT VERSUS HOST DISEASE
  4. FLUDARABINE PHOSPHATE [Suspect]
  5. DAUNORUBICIN [Suspect]
     Indication: ACUTE MYELOID LEUKAEMIA
  6. CYTARABINE [Suspect]
     Indication: ACUTE MYELOID LEUKAEMIA
  7. TACROLIMUS [Suspect]
  8. MYCOPHENOLATE MOFETIL [Suspect]

REACTIONS (2)
  - HERPES SIMPLEX [None]
  - SQUAMOUS CELL CARCINOMA [None]
